FAERS Safety Report 15363755 (Version 2)
Quarter: 2018Q4

REPORT INFORMATION
  Report Type: Spontaneous
  Country: US (occurrence: US)
  Receive Date: 20180908
  Receipt Date: 20181003
  Transmission Date: 20190204
  Serious: No
  Sender: FDA-Public Use
  Company Number: US-JNJFOC-20180813066

PATIENT
  Age: 51 Year
  Sex: Male
  Weight: 84.82 kg

DRUGS (1)
  1. TYLENOL EXTRA STRENGTH [Suspect]
     Active Substance: ACETAMINOPHEN
     Indication: HEADACHE
     Dosage: ONCE
     Route: 048
     Dates: start: 20180807

REACTIONS (2)
  - Incorrect dose administered [Unknown]
  - Product lot number issue [Unknown]

NARRATIVE: CASE EVENT DATE: 20180807
